FAERS Safety Report 22294444 (Version 1)
Quarter: 2023Q2

REPORT INFORMATION
  Report Type: Spontaneous
  Country: US (occurrence: US)
  Receive Date: 20230508
  Receipt Date: 20230508
  Transmission Date: 20230721
  Serious: No
  Sender: FDA-Public Use
  Company Number: US-ASTELLAS-2022US015648

PATIENT
  Age: 83 Year
  Sex: Male

DRUGS (4)
  1. LEXISCAN [Suspect]
     Active Substance: REGADENOSON
     Indication: Product used for unknown indication
     Dosage: UNK UNK, ONE DOSE TODAY
     Route: 065
     Dates: start: 20220425, end: 20220425
  2. LEXISCAN [Suspect]
     Active Substance: REGADENOSON
     Indication: Product used for unknown indication
     Dosage: UNK UNK, ONE DOSE TODAY
     Route: 065
     Dates: start: 20220425, end: 20220425
  3. LEXISCAN [Suspect]
     Active Substance: REGADENOSON
     Indication: Product used for unknown indication
     Dosage: UNK UNK, ONE DOSE TODAY
     Route: 065
     Dates: start: 20220425, end: 20220425
  4. LEXISCAN [Suspect]
     Active Substance: REGADENOSON
     Indication: Product used for unknown indication
     Dosage: UNK UNK, ONE DOSE TODAY
     Route: 065
     Dates: start: 20220425, end: 20220425

REACTIONS (2)
  - Discomfort [Unknown]
  - Injection site pain [Not Recovered/Not Resolved]

NARRATIVE: CASE EVENT DATE: 20220425
